FAERS Safety Report 5850390-8 (Version None)
Quarter: 2008Q3

REPORT INFORMATION
  Report Type: 
  Country: None (occurrence: None)
  Receive Date: 20080818
  Receipt Date: 20020107
  Transmission Date: 20090109
  Serious: Yes (Other)
  Sender: FDA-Public Use
  Company Number: PAR_02304_2008

PATIENT
  Age: 30 Year
  Sex: Female

DRUGS (4)
  1. IBUPROFEN [Suspect]
     Indication: HEADACHE
     Dosage: (DF)
     Dates: start: 20020104
  2. AVELOX [Suspect]
     Indication: OROPHARYNGEAL PAIN
     Dosage: (DF)
     Dates: start: 20020103, end: 20020104
  3. AVELOX [Suspect]
     Indication: SINUS HEADACHE
     Dosage: (DF)
     Dates: start: 20020103, end: 20020104
  4. NAPROSYN [Suspect]
     Indication: HEADACHE
     Dosage: (DF)
     Dates: start: 20020104

REACTIONS (8)
  - ANAPHYLACTIC REACTION [None]
  - BURNING SENSATION [None]
  - DYSPNOEA [None]
  - HYPERHIDROSIS [None]
  - PALPITATIONS [None]
  - TONGUE DISORDER [None]
  - TREMOR [None]
  - VOMITING [None]
